FAERS Safety Report 5195246-1 (Version None)
Quarter: 2006Q4

REPORT INFORMATION
  Report Type: 
  Country: None (occurrence: None)
  Receive Date: 20061229
  Receipt Date: 20061101
  Transmission Date: 20070319
  Serious: Yes (Other)
  Sender: FDA-Public Use
  Company Number: US-PFIZER INC-2006133678

PATIENT
  Sex: Male
  Weight: 93.9 kg

DRUGS (4)
  1. NORVASC [Suspect]
     Indication: HYPERTENSION
  2. NORVASC [Suspect]
     Dates: start: 20040510, end: 20060101
  3. ASPIRIN [Concomitant]
  4. NEXIUM [Concomitant]

REACTIONS (3)
  - BREAST MASS [None]
  - BREAST PAIN [None]
  - GYNAECOMASTIA [None]
